FAERS Safety Report 4378873-0 (Version None)
Quarter: 2004Q2

REPORT INFORMATION
  Report Type: 
  Country: None (occurrence: None)
  Receive Date: 20040601
  Receipt Date: 20040130
  Transmission Date: 20050107
  Serious: No
  Sender: FDA-Public Use
  Company Number: WAES0402USA00047

PATIENT
  Age: 64 Year
  Sex: Male

DRUGS (3)
  1. ZETIA [Suspect]
     Indication: BLOOD CHOLESTEROL INCREASED
     Dosage: 10 MG/DAILY/PO
     Route: 048
     Dates: start: 20030101
  2. COZAAR [Concomitant]
  3. GEMFIBROZIL [Concomitant]

REACTIONS (2)
  - ASTHENIA [None]
  - HAEMATOCHEZIA [None]
